FAERS Safety Report 9682828 (Version 3)
Quarter: 2014Q1

REPORT INFORMATION
  Report Type: Spontaneous
  Country: GB (occurrence: GB)
  Receive Date: 20131112
  Receipt Date: 20140312
  Transmission Date: 20141002
  Serious: Yes (Other)
  Sender: FDA-Public Use
  Company Number: PHFR2013GB006370

PATIENT
  Sex: Male

DRUGS (3)
  1. CLOZARIL [Suspect]
     Indication: SCHIZOPHRENIA
     Dosage: UNK
     Route: 048
     Dates: start: 20111025
  2. SULPIRIDE [Suspect]
     Dosage: UNK
  3. FLUPENTIXOL [Suspect]
     Dosage: UNK

REACTIONS (3)
  - Psychotic disorder [Unknown]
  - Upper respiratory tract infection [Unknown]
  - Pyrexia [Unknown]
